FAERS Safety Report 10155409 (Version 2)
Quarter: 2014Q2

REPORT INFORMATION
  Report Type: Spontaneous
  Country: FI (occurrence: FI)
  Receive Date: 20140506
  Receipt Date: 20140506
  Transmission Date: 20141212
  Serious: Yes (Other)
  Sender: FDA-Public Use
  Company Number: CHPA2014FI005089

PATIENT
  Sex: Female

DRUGS (2)
  1. OTRIVIN COMP [Suspect]
     Indication: NASAL CONGESTION
     Dosage: UNK
     Dates: start: 20140405
  2. OTRIVIN COMP [Suspect]
     Indication: RHINORRHOEA

REACTIONS (7)
  - Dyspnoea [Not Recovered/Not Resolved]
  - Oropharyngeal pain [Unknown]
  - Tenderness [Not Recovered/Not Resolved]
  - Scab [Unknown]
  - Epistaxis [Unknown]
  - Nasal congestion [Unknown]
  - Nasal dryness [Not Recovered/Not Resolved]
